FAERS Safety Report 10266933 (Version 1)
Quarter: 2014Q2

REPORT INFORMATION
  Report Type: Spontaneous
  Country: US (occurrence: US)
  Receive Date: 20140630
  Receipt Date: 20140630
  Transmission Date: 20141212
  Serious: Yes (Other)
  Sender: FDA-Public Use
  Company Number: US-BIOGENIDEC-2014BI062753

PATIENT
  Sex: Female

DRUGS (1)
  1. TYSABRI [Suspect]
     Indication: MULTIPLE SCLEROSIS
     Route: 042
     Dates: start: 201312, end: 201403

REACTIONS (5)
  - Weight decreased [Unknown]
  - Coma [Unknown]
  - Pain in extremity [Unknown]
  - Paraesthesia [Unknown]
  - Vomiting [Unknown]
